FAERS Safety Report 6151810-4 (Version None)
Quarter: 2009Q2

REPORT INFORMATION
  Report Type: 
  Country: None (occurrence: None)
  Receive Date: 20090410
  Receipt Date: 20090403
  Transmission Date: 20091009
  Serious: Yes (Hospitalization, Other)
  Sender: FDA-Public Use
  Company Number: US-AVENTIS-200912834US

PATIENT
  Sex: Female

DRUGS (4)
  1. LOVENOX [Suspect]
     Dates: start: 20080101
  2. LOVENOX [Suspect]
     Dates: start: 20090201, end: 20090201
  3. LOVENOX [Suspect]
     Dates: start: 20090101, end: 20090101
  4. CARDIOVASCULAR SYSTEM DRUGS [Concomitant]
     Dosage: DOSE: UNK

REACTIONS (6)
  - ABDOMINAL PAIN [None]
  - DRUG INEFFECTIVE [None]
  - HAEMATOMA [None]
  - INJECTION SITE MASS [None]
  - INJECTION SITE PAIN [None]
  - THROMBOSIS [None]
